FAERS Safety Report 6293065-6 (Version None)
Quarter: 2009Q3

REPORT INFORMATION
  Report Type: 
  Country: None (occurrence: None)
  Receive Date: 20090731
  Receipt Date: 20090722
  Transmission Date: 20100115
  Serious: Yes (Death, Other)
  Sender: FDA-Public Use
  Company Number: JP-BRISTOL-MYERS SQUIBB COMPANY-14714760

PATIENT
  Age: 64 Year
  Sex: Male

DRUGS (4)
  1. PARAPLATIN [Suspect]
     Indication: LUNG ADENOCARCINOMA
     Route: 041
  2. DOCETAXEL [Suspect]
     Indication: LUNG ADENOCARCINOMA
     Dosage: FORM = INJ
     Route: 042
  3. IRINOTECAN HCL [Suspect]
     Indication: LUNG ADENOCARCINOMA
     Dosage: IRINOTECAN HCL HYDRATE FORM = INJ
     Route: 042
  4. GEMCITABINE HCL [Suspect]
     Indication: LUNG ADENOCARCINOMA
     Dosage: FORM = INJ
     Route: 042

REACTIONS (2)
  - DEEP VEIN THROMBOSIS [None]
  - INTERSTITIAL LUNG DISEASE [None]
